FAERS Safety Report 16961771 (Version 1)
Quarter: 2019Q4

REPORT INFORMATION
  Report Type: Report from Study
  Country: BR (occurrence: BR)
  Receive Date: 20191025
  Receipt Date: 20191025
  Transmission Date: 20200122
  Serious: Yes (Other)
  Sender: FDA-Public Use
  Company Number: BR-BRISTOL-MYERS SQUIBB COMPANY-BMS-2019-100101

PATIENT
  Age: 34 Year
  Sex: Female

DRUGS (1)
  1. ABATACEPT [Suspect]
     Active Substance: ABATACEPT
     Indication: RHEUMATOID ARTHRITIS
     Dosage: 500 MILLIGRAM (TWO 250MG VIALS), QMO
     Route: 042

REACTIONS (1)
  - Patient-device incompatibility [Recovering/Resolving]

NARRATIVE: CASE EVENT DATE: 20191009
